FAERS Safety Report 6368547-9 (Version None)
Quarter: 2009Q3

REPORT INFORMATION
  Report Type: 
  Country: None (occurrence: None)
  Receive Date: 20090922
  Receipt Date: 20090911
  Transmission Date: 20100115
  Serious: Yes (Hospitalization, Other)
  Sender: FDA-Public Use
  Company Number: US-JNJFOC-20090601905

PATIENT
  Sex: Female

DRUGS (3)
  1. REMICADE [Suspect]
     Route: 042
     Dates: start: 20081201, end: 20090601
  2. REMICADE [Suspect]
     Route: 042
     Dates: start: 20081201, end: 20090601
  3. REMICADE [Suspect]
     Indication: RHEUMATOID ARTHRITIS
     Route: 042
     Dates: start: 20081201, end: 20090601

REACTIONS (2)
  - IMPAIRED GASTRIC EMPTYING [None]
  - PNEUMONIA CRYPTOCOCCAL [None]
